FAERS Safety Report 20049569 (Version 5)
Quarter: 2021Q4

REPORT INFORMATION
  Report Type: Spontaneous
  Country: FR (occurrence: FR)
  Receive Date: 20211109
  Receipt Date: 20211213
  Transmission Date: 20220303
  Serious: Yes (Other)
  Sender: FDA-Public Use
  Company Number: FR-ORGANON-O2111FRA000603

PATIENT
  Sex: Female

DRUGS (2)
  1. NEXPLANON [Suspect]
     Active Substance: ETONOGESTREL
     Dosage: 1 IMPLANT, INSERTED IN LEFT ARM
     Route: 059
     Dates: start: 2014
  2. NEXPLANON [Suspect]
     Active Substance: ETONOGESTREL
     Dosage: 1 IMPLANT,RIGHT ARM
     Route: 059
     Dates: start: 2018, end: 202110

REACTIONS (8)
  - Device dislocation [Not Recovered/Not Resolved]
  - Complication of device removal [Not Recovered/Not Resolved]
  - Complication of device removal [Not Recovered/Not Resolved]
  - Complication associated with device [Recovered/Resolved]
  - Device placement issue [Unknown]
  - Incorrect product administration duration [Unknown]
  - Overdose [Unknown]
  - Device use issue [Unknown]

NARRATIVE: CASE EVENT DATE: 20140101
